FAERS Safety Report 11392046 (Version 1)
Quarter: 2015Q3

REPORT INFORMATION
  Report Type: Spontaneous
  Country: US (occurrence: None)
  Receive Date: 20150817
  Receipt Date: 20150817
  Transmission Date: 20151125
  Serious: Yes (Hospitalization)
  Sender: FDA-Public Use
  Company Number: 2015SUP00013

PATIENT
  Age: 67 Year
  Sex: Female
  Weight: 56.7 kg

DRUGS (4)
  1. ZOCOR [Concomitant]
     Active Substance: SIMVASTATIN
  2. ASPIRIN. [Concomitant]
     Active Substance: ASPIRIN
  3. OXTELLAR XR [Suspect]
     Active Substance: OXCARBAZEPINE
     Indication: TRIGEMINAL NEURALGIA
     Dosage: 300 MG, 1X/DAY, ORAL
     Route: 048
     Dates: start: 20150110, end: 201501
  4. GABAPENTIN. [Concomitant]
     Active Substance: GABAPENTIN

REACTIONS (9)
  - Dizziness [None]
  - Paraesthesia [None]
  - Thinking abnormal [None]
  - Chest pain [None]
  - Visual impairment [None]
  - Memory impairment [None]
  - Off label use [None]
  - Hyperhidrosis [None]
  - Syncope [None]

NARRATIVE: CASE EVENT DATE: 20150110
